FAERS Safety Report 5915341-6 (Version None)
Quarter: 2008Q3

REPORT INFORMATION
  Report Type: 
  Country: None (occurrence: None)
  Receive Date: 20080909
  Receipt Date: 20080225
  Transmission Date: 20090109
  Serious: Yes (Hospitalization)
  Sender: FDA-Public Use
  Company Number: 163-20785-07120954

PATIENT
  Age: 80 Year
  Sex: Male

DRUGS (1)
  1. THALOMID [Suspect]
     Indication: MYELODYSPLASTIC SYNDROME
     Dosage: 50 MG, 1 IN 1 D, ORAL
     Route: 048
     Dates: start: 20071019

REACTIONS (4)
  - INFECTION [None]
  - OEDEMA PERIPHERAL [None]
  - UNEVALUABLE EVENT [None]
  - WHITE BLOOD CELL COUNT DECREASED [None]
